FAERS Safety Report 15527449 (Version 2)
Quarter: 2019Q1

REPORT INFORMATION
  Report Type: Spontaneous
  Country: IT (occurrence: IT)
  Receive Date: 20181020
  Receipt Date: 20190208
  Transmission Date: 20190417
  Serious: Yes (Hospitalization)
  Sender: FDA-Public Use
  Company Number: IT-ACCORD-073487

PATIENT
  Age: 82 Year
  Sex: Female

DRUGS (4)
  1. SOLDESAM [Concomitant]
     Active Substance: DEXAMETHASONE
     Indication: NEOPLASM PROPHYLAXIS
     Route: 042
     Dates: start: 20180313, end: 20180327
  2. OXALIPLATIN. [Suspect]
     Active Substance: OXALIPLATIN
     Indication: COLORECTAL CANCER
     Route: 042
     Dates: start: 20180313, end: 20180327
  3. CALCIUM FOLINATE/FOLINIC ACID/SODIUM FOLINATE [Concomitant]
     Indication: COLORECTAL CANCER
     Route: 042
     Dates: start: 20180313, end: 20180327
  4. FLUOROURACIL/FLUOROURACIL SODIUM [Concomitant]
     Indication: COLORECTAL CANCER
     Route: 042
     Dates: start: 20180313, end: 20180327

REACTIONS (4)
  - Bronchospasm [Recovered/Resolved]
  - Tremor [Recovered/Resolved]
  - Cyanosis [Recovered/Resolved]
  - Hypersensitivity [Recovered/Resolved]

NARRATIVE: CASE EVENT DATE: 20180327
